FAERS Safety Report 6855981-3 (Version None)
Quarter: 2010Q2

REPORT INFORMATION
  Report Type: 
  Country: None (occurrence: None)
  Receive Date: 20100629
  Receipt Date: 20100517
  Transmission Date: 20101027
  Serious: No
  Sender: FDA-Public Use
  Company Number: US-WYE-H15214910

PATIENT
  Age: 55 Year
  Sex: Female
  Weight: 95.34 kg

DRUGS (7)
  1. PRISTIQ [Suspect]
     Indication: ANXIETY
     Dosage: 50 MG 1X PER 1 DAY, ORAL
     Route: 048
     Dates: start: 20100101
  2. PRISTIQ [Suspect]
     Indication: DEPRESSION
     Dosage: 50 MG 1X PER 1 DAY, ORAL
     Route: 048
     Dates: start: 20100101
  3. TRICOR [Concomitant]
  4. ADVAIR DISKUS 100/50 [Concomitant]
  5. ERY-TAB (ERYTHROMYCIN) [Concomitant]
  6. FLUTICASONE PROPIONATE [Concomitant]
  7. PROAIR HFA [Concomitant]

REACTIONS (2)
  - DYSGEUSIA [None]
  - PAROSMIA [None]
